FAERS Safety Report 7367841-2 (Version None)
Quarter: 2011Q1

REPORT INFORMATION
  Report Type: 
  Country: None (occurrence: None)
  Receive Date: 20110322
  Receipt Date: 20110314
  Transmission Date: 20110831
  Serious: Yes (Hospitalization, Other)
  Sender: FDA-Public Use
  Company Number: US-PFIZER INC-2010161823

PATIENT
  Sex: Male

DRUGS (6)
  1. HYDROCODONE [Concomitant]
     Indication: INTERVERTEBRAL DISC PROTRUSION
     Dosage: UNK
     Dates: start: 20060101
  2. CHANTIX [Suspect]
     Indication: SMOKING CESSATION THERAPY
     Dosage: 1 MG, 2X/DAY
     Dates: start: 20070928, end: 20080401
  3. AMBIEN [Concomitant]
     Indication: SLEEP DISORDER
     Dosage: UNK
     Dates: start: 19960101, end: 20060101
  4. ABILIFY [Concomitant]
     Indication: BIPOLAR DISORDER
  5. IMITREX [Concomitant]
     Indication: MIGRAINE
     Dosage: UNK
     Dates: start: 19960101
  6. ABILIFY [Concomitant]
     Indication: DEPRESSION
     Dosage: UNK
     Dates: start: 20070101

REACTIONS (9)
  - INTENTIONAL OVERDOSE [None]
  - MENTAL DISORDER [None]
  - AGITATION [None]
  - EMOTIONAL DISTRESS [None]
  - SUICIDE ATTEMPT [None]
  - ANXIETY [None]
  - DEPRESSION [None]
  - ABNORMAL BEHAVIOUR [None]
  - AGGRESSION [None]
